FAERS Safety Report 11742605 (Version 1)
Quarter: 2015Q4

REPORT INFORMATION
  Report Type: Spontaneous
  Country: US (occurrence: None)
  Receive Date: 20151113
  Receipt Date: 20151113
  Transmission Date: 20160304
  Serious: Yes (Hospitalization)
  Sender: FDA-Public Use
  Company Number: None

PATIENT
  Age: 48 Year
  Sex: Female
  Weight: 83.6 kg

DRUGS (2)
  1. CYCLOPHOSPHAMIDE. [Suspect]
     Active Substance: CYCLOPHOSPHAMIDE
     Dates: end: 20151019
  2. DOXORUBICIN HYDROCHLORIDE. [Suspect]
     Active Substance: DOXORUBICIN HYDROCHLORIDE
     Dates: end: 20151019

REACTIONS (11)
  - Dehydration [None]
  - Viral infection [None]
  - Local swelling [None]
  - Fatigue [None]
  - Pain [None]
  - Asthenia [None]
  - Constipation [None]
  - Tenderness [None]
  - Stomatitis [None]
  - Dyspnoea [None]
  - Parotid gland enlargement [None]

NARRATIVE: CASE EVENT DATE: 20151105
